FAERS Safety Report 7480007-0 (Version None)
Quarter: 2011Q2

REPORT INFORMATION
  Report Type: 
  Country: None (occurrence: None)
  Receive Date: 20110516
  Receipt Date: 20110512
  Transmission Date: 20111010
  Serious: Yes (Hospitalization)
  Sender: FDA-Public Use
  Company Number: FR-BIOGENIDEC-2011BI017676

PATIENT
  Age: 39 Year
  Sex: Female

DRUGS (5)
  1. AVONEX [Suspect]
     Route: 030
     Dates: start: 20110301
  2. ACETAMINOPHEN [Concomitant]
     Dates: start: 20110301
  3. ART [Concomitant]
     Indication: OSTEOARTHRITIS
  4. LEVOTHYROXINE SODIUM [Concomitant]
     Indication: AUTOIMMUNE THYROIDITIS
     Dates: start: 20050101
  5. AVONEX [Suspect]
     Indication: MULTIPLE SCLEROSIS
     Route: 030
     Dates: start: 20091001, end: 20101001

REACTIONS (2)
  - BRAIN STEM INFARCTION [None]
  - MUSCULAR WEAKNESS [None]
